FAERS Safety Report 6175376-8 (Version None)
Quarter: 2009Q2

REPORT INFORMATION
  Report Type: 
  Country: None (occurrence: None)
  Receive Date: 20090430
  Receipt Date: 20090408
  Transmission Date: 20091009
  Serious: Yes (Hospitalization, Disabling, Other)
  Sender: FDA-Public Use
  Company Number: FI-MERCK-0904FIN00001

PATIENT
  Age: 86 Year
  Sex: Female

DRUGS (8)
  1. ZOCOR [Suspect]
     Indication: HYPERCHOLESTEROLAEMIA
     Route: 048
     Dates: start: 20030130, end: 20080819
  2. FUROSEMIDE [Concomitant]
     Indication: CARDIAC FAILURE
     Route: 048
  3. PODOPHYLLOTOXIN SEMISYNTHETIC GLYCOSIDES [Suspect]
     Indication: RHEUMATOID ARTHRITIS
     Route: 047
     Dates: start: 20080520, end: 20080819
  4. ISOSORBIDE MONONITRATE [Concomitant]
     Indication: ANGINA PECTORIS
     Route: 048
  5. SPIRONOLACTONE [Concomitant]
     Indication: CARDIAC FAILURE
     Route: 048
  6. BISOPROLOL [Concomitant]
     Indication: ANGINA PECTORIS
     Route: 048
  7. ESOMEPRAZOLE MAGNESIUM [Concomitant]
     Indication: REFLUX GASTRITIS
     Route: 048
  8. WARFARIN SODIUM [Concomitant]
     Indication: CARDIOVASCULAR DISORDER
     Route: 048

REACTIONS (3)
  - CARDIAC FAILURE [None]
  - DRUG INTERACTION [None]
  - RHABDOMYOLYSIS [None]
